FAERS Safety Report 21363482 (Version 1)
Quarter: 2022Q3

REPORT INFORMATION
  Report Type: Spontaneous
  Country: DE (occurrence: DE)
  Receive Date: 20220922
  Receipt Date: 20220922
  Transmission Date: 20221027
  Serious: Yes (Hospitalization, Other)
  Sender: FDA-Public Use
  Company Number: None

PATIENT
  Age: 72 Year
  Sex: Male
  Weight: 87 kg

DRUGS (15)
  1. NEBIVOLOL [Suspect]
     Active Substance: NEBIVOLOL
     Indication: Product used for unknown indication
     Dosage: 5 MG, 0-0-0.5-0
     Route: 065
  2. RIVAROXABAN [Suspect]
     Active Substance: RIVAROXABAN
     Indication: Product used for unknown indication
     Dosage: 15 MG, 1-0-0-0
     Route: 065
  3. AMIODARONE [Concomitant]
     Active Substance: AMIODARONE
     Indication: Product used for unknown indication
     Dosage: 200 MG, 1-0-0-0
     Route: 065
  4. ATORVASTATIN [Concomitant]
     Active Substance: ATORVASTATIN
     Indication: Product used for unknown indication
     Dosage: 40 MG, 0-0-1-0
     Route: 065
  5. DIGITOXIN [Concomitant]
     Active Substance: DIGITOXIN
     Indication: Product used for unknown indication
     Dosage: 0.07 MG, 1-0-0-0
     Route: 065
  6. Eisen(II) [Concomitant]
     Indication: Product used for unknown indication
     Dosage: 1-0-0-0
     Route: 065
  7. Glycopyrroniumbromid/Indacaterol [Concomitant]
     Indication: Product used for unknown indication
     Dosage: 80|43 G, 1-0-0-0
     Route: 065
  8. INSULIN GLARGINE [Concomitant]
     Active Substance: INSULIN GLARGINE
     Indication: Product used for unknown indication
     Dosage: 1 IE, 0-0-40-0
     Route: 065
  9. Levothyroxin-SODIUM [Concomitant]
     Indication: Product used for unknown indication
     Dosage: 75 G, 1-0-0-0
     Route: 065
  10. MAGNESIUM [Concomitant]
     Active Substance: MAGNESIUM
     Indication: Product used for unknown indication
     Dosage: 1-0-0-0
     Route: 065
  11. ROFLUMILAST [Concomitant]
     Active Substance: ROFLUMILAST
     Indication: Product used for unknown indication
     Dosage: 250 MG, 1-0-0-0
     Route: 065
  12. SACUBITRIL\VALSARTAN [Concomitant]
     Active Substance: SACUBITRIL\VALSARTAN
     Indication: Product used for unknown indication
     Dosage: 24|26 MG, 1-0-1-0
     Route: 065
  13. SODIUM BICARBONATE [Concomitant]
     Active Substance: SODIUM BICARBONATE
     Indication: Product used for unknown indication
     Dosage: 1000 MG, 1-0-1-0
     Route: 065
  14. TORSEMIDE [Concomitant]
     Active Substance: TORSEMIDE
     Indication: Product used for unknown indication
     Dosage: 20 MG, 1-1-0-0
     Route: 065
  15. TRAMADOL [Concomitant]
     Active Substance: TRAMADOL
     Indication: Product used for unknown indication
     Dosage: 50 MG, 1-0-1-0
     Route: 065

REACTIONS (12)
  - Dyspnoea [Unknown]
  - Systemic infection [Unknown]
  - Condition aggravated [Unknown]
  - Acute respiratory failure [Unknown]
  - Anaemia [Unknown]
  - General physical health deterioration [Unknown]
  - Renal impairment [Unknown]
  - Chronic obstructive pulmonary disease [Unknown]
  - Haemothorax [Unknown]
  - Oedema peripheral [Unknown]
  - Electrocardiogram abnormal [Unknown]
  - Tachypnoea [Unknown]
